FAERS Safety Report 6968265-X (Version None)
Quarter: 2010Q3

REPORT INFORMATION
  Report Type: 
  Country: None (occurrence: None)
  Receive Date: 20100907
  Receipt Date: 20100827
  Transmission Date: 20110219
  Serious: Yes (Hospitalization)
  Sender: FDA-Public Use
  Company Number: US-BAXTER-2010BH020887

PATIENT
  Sex: Male

DRUGS (2)
  1. DIANEAL [Suspect]
     Indication: PERITONEAL DIALYSIS
     Route: 033
     Dates: start: 20050101, end: 20100622
  2. DIANEAL [Suspect]
     Route: 033
     Dates: start: 20100728

REACTIONS (2)
  - BACK PAIN [None]
  - OSTEOMYELITIS [None]
